APPROVED DRUG PRODUCT: CLOMIPHENE CITRATE
Active Ingredient: CLOMIPHENE CITRATE
Strength: 50MG
Dosage Form/Route: TABLET;ORAL
Application: A216739 | Product #001 | TE Code: AB
Applicant: APPCO PHARMA LLC
Approved: Nov 8, 2024 | RLD: No | RS: No | Type: RX